FAERS Safety Report 7460471-3 (Version None)
Quarter: 2011Q2

REPORT INFORMATION
  Report Type: 
  Country: None (occurrence: None)
  Receive Date: 20110505
  Receipt Date: 20110502
  Transmission Date: 20111010
  Serious: Yes (Other)
  Sender: FDA-Public Use
  Company Number: US-PFIZER INC-2011036264

PATIENT
  Sex: Male

DRUGS (4)
  1. LEXAPRO [Concomitant]
     Indication: HYPERTENSION
     Dosage: UNK
     Dates: start: 20010101, end: 20100701
  2. IMITREX [Concomitant]
     Indication: MIGRAINE
     Dosage: UNK
     Dates: start: 20040101, end: 20110101
  3. LIPITOR [Concomitant]
     Indication: BLOOD CHOLESTEROL INCREASED
     Dosage: UNK
     Dates: start: 20010101
  4. CHANTIX [Suspect]
     Indication: SMOKING CESSATION THERAPY
     Dosage: UNK
     Dates: start: 20071001, end: 20080601

REACTIONS (7)
  - ANXIETY [None]
  - DEPRESSION [None]
  - IRRITABILITY [None]
  - AGGRESSION [None]
  - SUICIDAL BEHAVIOUR [None]
  - LOSS OF CONSCIOUSNESS [None]
  - MENTAL DISORDER [None]
